FAERS Safety Report 24130266 (Version 1)
Quarter: 2024Q3

REPORT INFORMATION
  Report Type: Other
  Country: IT (occurrence: IT)
  Receive Date: 20240724
  Receipt Date: 20240724
  Transmission Date: 20241017
  Serious: Yes (Death, Hospitalization)
  Sender: BIONPHARMA
  Company Number: IT-Bion-013496

PATIENT
  Age: 0 Year
  Sex: Female

DRUGS (3)
  1. AZITHROMYCIN [Suspect]
     Active Substance: AZITHROMYCIN
     Indication: Bordetella infection
  2. MEROPENEM [Concomitant]
     Active Substance: MEROPENEM
     Indication: Bordetella infection
  3. VANCOMYCIN [Concomitant]
     Active Substance: VANCOMYCIN
     Indication: Bordetella infection

REACTIONS (1)
  - Drug ineffective [Fatal]
